FAERS Safety Report 7269688-4 (Version None)
Quarter: 2011Q1

REPORT INFORMATION
  Report Type: 
  Country: None (occurrence: None)
  Receive Date: 20110124
  Receipt Date: 20110113
  Transmission Date: 20110831
  Serious: Yes (Death)
  Sender: FDA-Public Use
  Company Number: ALA_01538_2011

PATIENT
  Age: 56 Year
  Sex: Female

DRUGS (4)
  1. QUETIAPINE [Suspect]
     Dosage: (DF ORAL)
     Route: 048
  2. DULOXETINE [Suspect]
     Dosage: (DF ORAL)
     Route: 048
  3. METOPROLOL [Suspect]
     Dosage: (DF ORAL)
     Route: 048
  4. METOCLOPRAMIDE HYDROCHLORIDE [Suspect]
     Dosage: DF ORAL
     Route: 048

REACTIONS (2)
  - POISONING [None]
  - COMPLETED SUICIDE [None]
